FAERS Safety Report 15859205 (Version 2)
Quarter: 2019Q1

REPORT INFORMATION
  Report Type: Spontaneous
  Country: DE (occurrence: DE)
  Receive Date: 20190123
  Receipt Date: 20190225
  Transmission Date: 20190417
  Serious: Yes (Hospitalization)
  Sender: FDA-Public Use
  Company Number: DE-OTSUKA-2019_001596

PATIENT
  Age: 47 Year
  Sex: Male
  Weight: 109 kg

DRUGS (5)
  1. CARMEN [Concomitant]
     Active Substance: LERCANIDIPINE
     Indication: HYPERTENSION
     Dosage: 10 MG, UNK (TAKEN FOR MONTHS)
     Route: 048
  2. JINARC [Suspect]
     Active Substance: TOLVAPTAN
     Indication: CONGENITAL CYSTIC KIDNEY DISEASE
     Dosage: 45 MG, UNK
     Route: 048
  3. CANDESARTAN. [Concomitant]
     Active Substance: CANDESARTAN
     Indication: HYPERTENSION
     Dosage: 16 MG, UNK
     Route: 048
  4. TORASEMID [Concomitant]
     Active Substance: TORSEMIDE
     Indication: HYPERTENSION
     Dosage: 10 MG, UNK (TAKEN FOR A DAYS)
     Route: 048
  5. JINARC [Suspect]
     Active Substance: TOLVAPTAN
     Dosage: 15 MG, UNK
     Route: 048

REACTIONS (1)
  - Dyspnoea exertional [Recovering/Resolving]

NARRATIVE: CASE EVENT DATE: 20181210
